FAERS Safety Report 19922997 (Version 7)
Quarter: 2021Q4

REPORT INFORMATION
  Report Type: Report from Study
  Country: US (occurrence: US)
  Receive Date: 20211005
  Receipt Date: 20211215
  Transmission Date: 20220303
  Serious: Yes (Hospitalization, Other)
  Sender: FDA-Public Use
  Company Number: US-GILEAD-2021-0550994

PATIENT
  Sex: Female

DRUGS (6)
  1. AMBRISENTAN [Suspect]
     Active Substance: AMBRISENTAN
     Indication: Pulmonary arterial hypertension
     Dosage: 05 MG, QD
     Route: 065
     Dates: start: 20210607
  2. AMBRISENTAN [Suspect]
     Active Substance: AMBRISENTAN
     Indication: Substance use
  3. ORENITRAM [Suspect]
     Active Substance: TREPROSTINIL
     Indication: Product used for unknown indication
     Dosage: 10 MG
     Route: 065
  4. REMODULIN [Concomitant]
     Active Substance: TREPROSTINIL
  5. SILDENAFIL [Concomitant]
     Active Substance: SILDENAFIL
  6. SILDENAFIL CITRATE [Concomitant]
     Active Substance: SILDENAFIL CITRATE

REACTIONS (5)
  - Infusion site extravasation [Unknown]
  - Vascular device infection [Recovered/Resolved]
  - Flushing [Not Recovered/Not Resolved]
  - Catheter site infection [Unknown]
  - Erythema [Not Recovered/Not Resolved]
